FAERS Safety Report 13847131 (Version 8)
Quarter: 2019Q3

REPORT INFORMATION
  Report Type: Spontaneous
  Country: US (occurrence: US)
  Receive Date: 20170808
  Receipt Date: 20190730
  Transmission Date: 20191004
  Serious: Yes (Hospitalization)
  Sender: FDA-Public Use
  Company Number: US-ACTELION-A-NJ2017-157725

PATIENT
  Age: 67 Year
  Sex: Female
  Weight: 96.6 kg

DRUGS (6)
  1. TYVASO [Suspect]
     Active Substance: TREPROSTINIL
     Indication: PRODUCT USED FOR UNKNOWN INDICATION
     Route: 065
  2. ADCIRCA [Concomitant]
     Active Substance: TADALAFIL
  3. TYVASO [Suspect]
     Active Substance: TREPROSTINIL
     Dosage: 9 BREATHS 4 TIMES DAILY
     Route: 055
  4. OXYGEN. [Concomitant]
     Active Substance: OXYGEN
  5. OPSUMIT [Suspect]
     Active Substance: MACITENTAN
     Indication: PULMONARY ARTERIAL HYPERTENSION
     Dosage: 10 MG, QD
     Route: 048
  6. PROVENTIL [Concomitant]
     Active Substance: ALBUTEROL

REACTIONS (12)
  - Presyncope [Unknown]
  - Disease progression [Unknown]
  - Dyspnoea [Unknown]
  - Loss of consciousness [Unknown]
  - Device issue [Unknown]
  - Cough [Unknown]
  - Malaise [Unknown]
  - Cyanosis [Unknown]
  - Oxygen consumption increased [Unknown]
  - Syncope [Unknown]
  - Vomiting [Unknown]
  - Nasal congestion [Unknown]

NARRATIVE: CASE EVENT DATE: 20170901
